FAERS Safety Report 16859324 (Version 1)
Quarter: 2019Q3

REPORT INFORMATION
  Report Type: Spontaneous
  Country: CN (occurrence: CN)
  Receive Date: 20190927
  Receipt Date: 20190927
  Transmission Date: 20191005
  Serious: Yes (Hospitalization, Other)
  Sender: FDA-Public Use
  Company Number: CN-009507513-1909CHN007642

PATIENT
  Age: 39 Year
  Sex: Female
  Weight: 57 kg

DRUGS (2)
  1. CANCIDAS [Suspect]
     Active Substance: CASPOFUNGIN ACETATE
     Indication: LUNG INFECTION
     Dosage: 50 MILLIGRAM, QD
     Route: 042
     Dates: start: 20190617, end: 20190628
  2. SODIUM CHLORIDE. [Concomitant]
     Active Substance: SODIUM CHLORIDE
     Dosage: 100 MILLILITER, QD
     Route: 042
     Dates: start: 20190617, end: 20190628

REACTIONS (2)
  - Drug-induced liver injury [Unknown]
  - Transaminases increased [Recovering/Resolving]

NARRATIVE: CASE EVENT DATE: 20190628
